FAERS Safety Report 12175996 (Version 2)
Quarter: 2016Q2

REPORT INFORMATION
  Report Type: Spontaneous
  Country: IT (occurrence: IT)
  Receive Date: 20160314
  Receipt Date: 20160520
  Transmission Date: 20160815
  Serious: Yes (Other)
  Sender: FDA-Public Use
  Company Number: IT-TEVA-642722ACC

PATIENT
  Age: 71 Year
  Sex: Female

DRUGS (6)
  1. CARDICOR [Concomitant]
     Active Substance: BISOPROLOL
     Indication: PRODUCT USED FOR UNKNOWN INDICATION
     Dosage: 1.25 MG
     Route: 048
  2. INSULIN [Concomitant]
     Active Substance: INSULIN NOS
     Indication: TYPE 2 DIABETES MELLITUS
     Route: 058
  3. FLUOROURACIL. [Suspect]
     Active Substance: FLUOROURACIL
     Indication: OESOPHAGEAL SQUAMOUS CELL CARCINOMA
     Dosage: 570 MG CYCLICAL
     Route: 040
     Dates: start: 20151012, end: 20151030
  4. OXALIPLATIN. [Suspect]
     Active Substance: OXALIPLATIN
     Indication: OESOPHAGEAL SQUAMOUS CELL CARCINOMA
     Dosage: 160 MG CYCLICAL
     Route: 042
     Dates: start: 20151012, end: 20151030
  5. FLUOROURACIL. [Suspect]
     Active Substance: FLUOROURACIL
     Indication: OESOPHAGEAL SQUAMOUS CELL CARCINOMA
     Dosage: 3400 MG CYCLICAL
     Route: 042
     Dates: start: 20151012, end: 20151030
  6. LEDERFOLIN [Concomitant]
     Active Substance: LEUCOVORIN CALCIUM
     Indication: OESOPHAGEAL SQUAMOUS CELL CARCINOMA
     Dosage: 290 MG
     Route: 042
     Dates: start: 20151012, end: 20151030

REACTIONS (1)
  - Hyperbilirubinaemia [Unknown]

NARRATIVE: CASE EVENT DATE: 20151023
